FAERS Safety Report 21096696 (Version 1)
Quarter: 2022Q3

REPORT INFORMATION
  Report Type: Spontaneous
  Country: FI (occurrence: FI)
  Receive Date: 20220718
  Receipt Date: 20220718
  Transmission Date: 20221026
  Serious: Yes (Other)
  Sender: FDA-Public Use
  Company Number: None

PATIENT
  Age: 46 Year
  Sex: Female

DRUGS (6)
  1. CLINDAMYCIN HYDROCHLORIDE [Suspect]
     Active Substance: CLINDAMYCIN HYDROCHLORIDE
     Dosage: 300 MG, DAILY
     Route: 048
     Dates: start: 20210609, end: 20210614
  2. TARGINIQ ER [Concomitant]
     Active Substance: NALOXONE HYDROCHLORIDE\OXYCODONE HYDROCHLORIDE
     Dosage: UNK
     Route: 048
     Dates: start: 20210609, end: 20210610
  3. NATURE-THROID [Concomitant]
     Active Substance: THYROID, PORCINE
     Dosage: 65 MG, DAILY
     Route: 048
  4. PANADOL FORTE [PARACETAMOL] [Concomitant]
     Dosage: 1 G, DAILY
     Route: 048
     Dates: start: 20210609, end: 20210614
  5. ESTRADIOL [Concomitant]
     Active Substance: ESTRADIOL
     Dosage: UNK
  6. IBUPROFEN [Concomitant]
     Active Substance: IBUPROFEN
     Dosage: 600 MG, DAILY
     Route: 048
     Dates: start: 20210609, end: 20210614

REACTIONS (3)
  - Gastrointestinal infection [Not Recovered/Not Resolved]
  - Clostridium difficile infection [Not Recovered/Not Resolved]
  - Enterocolitis bacterial [Not Recovered/Not Resolved]

NARRATIVE: CASE EVENT DATE: 20210625
